FAERS Safety Report 10017291 (Version 2)
Quarter: 2014Q2

REPORT INFORMATION
  Report Type: Report from Study
  Country: US (occurrence: US)
  Receive Date: 20140318
  Receipt Date: 20140502
  Transmission Date: 20141212
  Serious: Yes (Death)
  Sender: FDA-Public Use
  Company Number: PHEH2014US005316

PATIENT
  Sex: Female
  Weight: 53.1 kg

DRUGS (1)
  1. AFINITOR [Suspect]
     Dates: end: 201308

REACTIONS (1)
  - Death [Fatal]
